FAERS Safety Report 19249686 (Version 1)
Quarter: 2021Q2

REPORT INFORMATION
  Report Type: Spontaneous
  Country: US (occurrence: US)
  Receive Date: 20210512
  Receipt Date: 20210512
  Transmission Date: 20210717
  Serious: No
  Sender: FDA-Public Use
  Company Number: US-UCBSA-2020046892

PATIENT
  Age: 26 Year
  Sex: Male

DRUGS (3)
  1. CIMZIA [Suspect]
     Active Substance: CERTOLIZUMAB PEGOL
     Indication: CROHN^S DISEASE
     Dosage: 400 MILLIGRAM, EV 4 WEEKS
     Route: 058
     Dates: start: 20201013
  2. CIMZIA [Suspect]
     Active Substance: CERTOLIZUMAB PEGOL
     Indication: SPINAL OSTEOARTHRITIS
  3. PREDNISONE. [Concomitant]
     Active Substance: PREDNISONE
     Indication: PRODUCT USED FOR UNKNOWN INDICATION
     Dosage: UNK

REACTIONS (7)
  - Feeling hot [Recovered/Resolved]
  - Dizziness [Recovered/Resolved]
  - Heart rate increased [Recovered/Resolved]
  - Hyperhidrosis [Recovered/Resolved]
  - Paraesthesia [Unknown]
  - Product use in unapproved indication [Unknown]
  - Anxiety [Unknown]

NARRATIVE: CASE EVENT DATE: 2020
